FAERS Safety Report 20880403 (Version 4)
Quarter: 2022Q4

REPORT INFORMATION
  Report Type: Spontaneous
  Country: JP (occurrence: JP)
  Receive Date: 20220526
  Receipt Date: 20221013
  Transmission Date: 20230112
  Serious: Yes (Hospitalization)
  Sender: FDA-Public Use
  Company Number: JP-ALLERGAN-2115105US

PATIENT
  Sex: Male

DRUGS (4)
  1. SILODOSIN [Suspect]
     Active Substance: SILODOSIN
     Indication: Dysuria
     Dosage: 4 MG, BID
     Route: 048
  2. PAXIL [Concomitant]
     Active Substance: PAROXETINE HYDROCHLORIDE
     Route: 048
  3. DIPHENIDOL HYDROCHLORIDE [Concomitant]
     Active Substance: DIPHENIDOL HYDROCHLORIDE
     Route: 048
  4. DUTASTERIDE [Concomitant]
     Active Substance: DUTASTERIDE
     Dosage: 0.5 MG, QD
     Route: 048

REACTIONS (6)
  - Bladder cancer [Unknown]
  - Tinnitus [Unknown]
  - Pollakiuria [Unknown]
  - Blood pressure increased [Unknown]
  - Urinary incontinence [Unknown]
  - Dizziness [Unknown]
